FAERS Safety Report 8561432-3 (Version None)
Quarter: 2012Q3

REPORT INFORMATION
  Report Type: 
  Country: None (occurrence: None)
  Receive Date: 20120802
  Receipt Date: 20120725
  Transmission Date: 20120928
  Serious: Yes (Death)
  Sender: FDA-Public Use
  Company Number: JP-GLAXOSMITHKLINE-B0797265A

PATIENT
  Age: 88 Year
  Sex: Female

DRUGS (2)
  1. PREDNISOLONE [Concomitant]
     Dosage: 20MG PER DAY
     Route: 048
  2. ALKERAN [Suspect]
     Indication: MULTIPLE MYELOMA
     Dosage: 4MG PER DAY
     Route: 048

REACTIONS (4)
  - DEATH [None]
  - HYPERVISCOSITY SYNDROME [None]
  - BREAST ENLARGEMENT [None]
  - OEDEMA PERIPHERAL [None]
